FAERS Safety Report 4323984-9 (Version None)
Quarter: 2004Q1

REPORT INFORMATION
  Report Type: 
  Country: None (occurrence: None)
  Receive Date: 20040326
  Receipt Date: 20031203
  Transmission Date: 20041129
  Serious: No
  Sender: FDA-Public Use
  Company Number: US-GLAXOSMITHKLINE-A0441765A

PATIENT
  Age: 73 Year
  Sex: Female

DRUGS (5)
  1. ADVAIR DISKUS 100/50 [Suspect]
     Dosage: 1PUFF TWICE PER DAY
     Route: 055
     Dates: start: 20030401, end: 20031001
  2. SEREVENT [Suspect]
     Dosage: 1PUFF TWICE PER DAY
     Route: 055
     Dates: start: 20031001
  3. COMBIVENT [Concomitant]
  4. DILTIAZEM [Concomitant]
  5. ZANTAC 75 [Concomitant]

REACTIONS (4)
  - CANDIDIASIS [None]
  - DIZZINESS [None]
  - DRUG INEFFECTIVE [None]
  - HOARSENESS [None]
